FAERS Safety Report 12076202 (Version 13)
Quarter: 2017Q1

REPORT INFORMATION
  Report Type: Report from Study
  Country: CA (occurrence: CA)
  Receive Date: 20160215
  Receipt Date: 20170208
  Transmission Date: 20170428
  Serious: Yes (Other)
  Sender: FDA-Public Use
  Company Number: CA-ROCHE-1158703

PATIENT
  Age: 44 Year
  Sex: Female
  Weight: 99 kg

DRUGS (9)
  1. ACTEMRA [Suspect]
     Active Substance: TOCILIZUMAB
     Route: 042
     Dates: start: 20130923
  2. ACTEMRA [Suspect]
     Active Substance: TOCILIZUMAB
     Route: 042
     Dates: start: 20150112
  3. DIOVAN HCT [Concomitant]
     Active Substance: HYDROCHLOROTHIAZIDE\VALSARTAN
     Dosage: 80/12.5 MG
     Route: 065
  4. PLAQUENIL [Concomitant]
     Active Substance: HYDROXYCHLOROQUINE SULFATE
     Route: 065
  5. ACTEMRA [Suspect]
     Active Substance: TOCILIZUMAB
     Indication: RHEUMATOID ARTHRITIS
     Route: 042
     Dates: start: 20121022, end: 20170109
  6. MICRONOR [Suspect]
     Active Substance: NORETHINDRONE
     Indication: PRODUCT USED FOR UNKNOWN INDICATION
     Route: 065
  7. FOLIC ACID. [Concomitant]
     Active Substance: FOLIC ACID
  8. METHOTREXATE. [Concomitant]
     Active Substance: METHOTREXATE
     Route: 065
  9. PREDNISONE. [Suspect]
     Active Substance: PREDNISONE
     Indication: PRODUCT USED FOR UNKNOWN INDICATION
     Route: 065
     Dates: end: 201211

REACTIONS (31)
  - Ovarian cyst [Recovered/Resolved]
  - Weight increased [Recovered/Resolved]
  - Bursitis [Recovering/Resolving]
  - Infusion related reaction [Unknown]
  - Diverticulitis [Not Recovered/Not Resolved]
  - Hot flush [Unknown]
  - Nasal congestion [Not Recovered/Not Resolved]
  - Hypotension [Unknown]
  - Peripheral swelling [Unknown]
  - Blood pressure increased [Unknown]
  - Heart rate increased [Unknown]
  - Pain [Recovering/Resolving]
  - Abdominal pain lower [Recovered/Resolved]
  - Nodule [Unknown]
  - Respiratory rate increased [Unknown]
  - Blood pressure systolic increased [Unknown]
  - Pain in extremity [Not Recovered/Not Resolved]
  - Arthralgia [Not Recovered/Not Resolved]
  - Abdominal pain [Unknown]
  - Musculoskeletal stiffness [Not Recovered/Not Resolved]
  - Tendonitis [Recovering/Resolving]
  - Menopause [Not Recovered/Not Resolved]
  - Peripheral coldness [Unknown]
  - Oxygen saturation decreased [Unknown]
  - Nasopharyngitis [Recovering/Resolving]
  - Groin pain [Not Recovered/Not Resolved]
  - Cheilitis [Recovering/Resolving]
  - Lip blister [Recovering/Resolving]
  - Heart rate increased [Unknown]
  - Oxygen saturation decreased [Unknown]
  - Drug ineffective [Unknown]

NARRATIVE: CASE EVENT DATE: 201211
